FAERS Safety Report 9095645 (Version 3)
Quarter: 2013Q1

REPORT INFORMATION
  Report Type: Spontaneous
  Country: MX (occurrence: MX)
  Receive Date: 20130220
  Receipt Date: 20130321
  Transmission Date: 20140127
  Serious: Yes (Other)
  Sender: FDA-Public Use
  Company Number: PHHY2013MX015293

PATIENT
  Age: 78 Year
  Sex: Female

DRUGS (11)
  1. DIOVAN [Suspect]
     Indication: HYPERTENSION
     Dosage: 2 DF (160 MG), DAILY
     Route: 048
     Dates: start: 201207, end: 201302
  2. SERETIDE EVOHALER [Concomitant]
     Indication: INCREASED UPPER AIRWAY SECRETION
     Dosage: 4 PUFFS DAILY
     Dates: start: 201302, end: 20130221
  3. PANTOPRAZOLE [Concomitant]
     Indication: FUNCTIONAL GASTROINTESTINAL DISORDER
     Dosage: 1DF, DAILY
     Dates: start: 201301
  4. ROFUCAL [Concomitant]
     Indication: DIURETIC THERAPY
     Dosage: 0.5 DF, DAILY
     Dates: start: 201212
  5. TRENTAL [Concomitant]
     Indication: ARTERIAL OCCLUSIVE DISEASE
     Dosage: 1DF, DAILY
     Dates: start: 201301
  6. DUPHALAC//LACTULOSE [Concomitant]
     Indication: GASTROINTESTINAL MOTILITY DISORDER
     Dosage: 40 ML,DAILY
     Dates: start: 201302
  7. XALANTAN [Concomitant]
     Indication: INTRAOCULAR PRESSURE TEST ABNORMAL
     Dosage: 1 DRP, DAILY.
     Dates: start: 200301
  8. ENDURA [Concomitant]
     Indication: EYE LUBRICATION THERAPY
     Dosage: 4 DRP, DAILY
     Dates: start: 201302
  9. GLP-1 AGONISTS [Concomitant]
     Indication: DIABETES MELLITUS
     Dosage: 0.5 DF, DAILY
     Dates: start: 201303
  10. PILOCARPINE [Concomitant]
     Indication: GLAUCOMA
     Dosage: 2 DRP, DAILY
     Dates: start: 201001
  11. EQUIN [Concomitant]
     Indication: INFECTION
     Dosage: 1 UKN, DAILY
     Dates: start: 201302, end: 20130221

REACTIONS (3)
  - Lung infection [Recovered/Resolved]
  - Constipation [Recovering/Resolving]
  - Arterial disorder [Unknown]
